FAERS Safety Report 14153497 (Version 2)
Quarter: 2018Q4

REPORT INFORMATION
  Report Type: Report from Study
  Country: US (occurrence: US)
  Receive Date: 20171102
  Receipt Date: 20181120
  Transmission Date: 20190204
  Serious: Yes (Hospitalization)
  Sender: FDA-Public Use
  Company Number: US-SA-2017SA139468

PATIENT
  Age: 78 Year
  Sex: Female

DRUGS (3)
  1. ALIROCUMAB [Suspect]
     Active Substance: ALIROCUMAB
     Dosage: 75 MG,QOW
     Route: 058
     Dates: start: 20171030
  2. ALIROCUMAB [Suspect]
     Active Substance: ALIROCUMAB
     Dosage: 75 MG,QOW
     Route: 058
     Dates: start: 20180605
  3. ALIROCUMAB [Suspect]
     Active Substance: ALIROCUMAB
     Dosage: 75 MG,QOW
     Route: 058
     Dates: start: 2016

REACTIONS (2)
  - Pernicious anaemia [Not Recovered/Not Resolved]
  - Blood pressure abnormal [Unknown]
